FAERS Safety Report 24351623 (Version 1)
Quarter: 2024Q3

REPORT INFORMATION
  Report Type: Spontaneous
  Country: RU (occurrence: RU)
  Receive Date: 20240923
  Receipt Date: 20240923
  Transmission Date: 20241017
  Serious: No
  Sender: ROCHE
  Company Number: RU-ROCHE-3557396

PATIENT
  Age: 69 Year
  Sex: Male

DRUGS (5)
  1. TRASTUZUMAB [Suspect]
     Active Substance: TRASTUZUMAB
     Indication: Gastric cancer
     Route: 041
     Dates: start: 20210409, end: 20210806
  2. DOCETAXEL [Suspect]
     Active Substance: DOCETAXEL\DOCETAXEL ANHYDROUS
     Indication: Gastric cancer
     Route: 041
     Dates: start: 20210409, end: 20210806
  3. OXALIPLATIN [Suspect]
     Active Substance: OXALIPLATIN
     Indication: Gastric cancer
     Dosage: DURATION OF INFUSION 2 HOURS
     Route: 042
     Dates: start: 20210409, end: 20210806
  4. LEUCOVORIN [Suspect]
     Active Substance: LEUCOVORIN\LEUCOVORIN CALCIUM
     Indication: Gastric cancer
     Dosage: DURATION OF INFUSION 2 HOURS
     Route: 042
     Dates: start: 20210409, end: 20210806
  5. FLUOROURACIL [Suspect]
     Active Substance: FLUOROURACIL
     Indication: Gastric cancer
     Dosage: FOR 46-48 HOURS
     Route: 042
     Dates: start: 20210409, end: 20210806

REACTIONS (2)
  - Nausea [Recovered/Resolved]
  - Leukopenia [Recovered/Resolved]
